FAERS Safety Report 5531288-1 (Version None)
Quarter: 2007Q4

REPORT INFORMATION
  Report Type: 
  Country: None (occurrence: None)
  Receive Date: 20071113
  Receipt Date: 20070927
  Transmission Date: 20080405
  Serious: Yes (Death)
  Sender: FDA-Public Use
  Company Number: THYM-11557

PATIENT

DRUGS (1)
  1. SIMULECT [Suspect]
     Indication: RENAL TRANSPLANT

REACTIONS (3)
  - LEUKOPENIA [None]
  - LUNG INFECTION [None]
  - PNEUMONIA PRIMARY ATYPICAL [None]
